FAERS Safety Report 4752539-7 (Version None)
Quarter: 2005Q3

REPORT INFORMATION
  Report Type: 
  Country: None (occurrence: None)
  Receive Date: 20050823
  Receipt Date: 20050810
  Transmission Date: 20060218
  Serious: Yes (Death)
  Sender: FDA-Public Use
  Company Number: GBS050216652

PATIENT
  Age: 27 Year
  Sex: Female

DRUGS (6)
  1. ZYPREXA [Suspect]
  2. RISPERIDONE [Concomitant]
  3. CLOPIXOL (ZUCLOPENTHIXOL) [Concomitant]
  4. CANNABIS [Concomitant]
  5. DEXTROAMPHETAMINE (DEXTROAMPHETAMINE) [Concomitant]
  6. ZOLPIDEM [Concomitant]

REACTIONS (10)
  - BRAIN OEDEMA [None]
  - COMPLETED SUICIDE [None]
  - CONFUSIONAL STATE [None]
  - DEPRESSION [None]
  - GASTRIC HAEMORRHAGE [None]
  - OVERDOSE [None]
  - PULMONARY CONGESTION [None]
  - PULMONARY HAEMORRHAGE [None]
  - PULMONARY OEDEMA [None]
  - SUDDEN DEATH [None]
